FAERS Safety Report 12679615 (Version 1)
Quarter: 2016Q3

REPORT INFORMATION
  Report Type: Spontaneous
  Country: US (occurrence: None)
  Receive Date: 20160823
  Receipt Date: 20160823
  Transmission Date: 20161109
  Serious: Yes (Hospitalization, Disabling)
  Sender: FDA-Public Use
  Company Number: None

PATIENT
  Age: 62 Year
  Sex: Female

DRUGS (1)
  1. DULOXETINE, 20MG APOTEX [Suspect]
     Active Substance: DULOXETINE
     Indication: FIBROMYALGIA
     Route: 048
     Dates: start: 20160201, end: 20160601

REACTIONS (5)
  - Hyperhidrosis [None]
  - Movement disorder [None]
  - Product substitution issue [None]
  - Pain [None]
  - Weight increased [None]

NARRATIVE: CASE EVENT DATE: 20160601
